FAERS Safety Report 5382679-3 (Version None)
Quarter: 2007Q3

REPORT INFORMATION
  Report Type: 
  Country: None (occurrence: None)
  Receive Date: 20070703
  Receipt Date: 20070703
  Transmission Date: 20080115
  Serious: Yes (Hospitalization)
  Sender: FDA-Public Use
  Company Number: None

PATIENT
  Sex: Male
  Weight: 84.8226 kg

DRUGS (1)
  1. LEVAQUIN [Suspect]
     Indication: SINUSITIS
     Dosage: 1 1/2 TABLET DAILY PO
     Route: 048
     Dates: start: 20070606, end: 20070607

REACTIONS (8)
  - ACTIVITIES OF DAILY LIVING IMPAIRED [None]
  - ARTHRALGIA [None]
  - ASTHENIA [None]
  - GROIN PAIN [None]
  - IMPAIRED WORK ABILITY [None]
  - MYALGIA [None]
  - PAIN IN EXTREMITY [None]
  - WEIGHT DECREASED [None]
